FAERS Safety Report 18918045 (Version 1)
Quarter: 2021Q1

REPORT INFORMATION
  Report Type: Spontaneous
  Country: US (occurrence: US)
  Receive Date: 20210219
  Receipt Date: 20210219
  Transmission Date: 20210420
  Serious: No
  Sender: FDA-Public Use
  Company Number: US-PERRIGO-20US012027

PATIENT
  Age: 47 Year
  Sex: Female
  Weight: 88.89 kg

DRUGS (5)
  1. KETOCONAZOLE. [Suspect]
     Active Substance: KETOCONAZOLE
     Indication: PRURITUS
     Dosage: SMALL AMOUNT, QOD
     Route: 061
     Dates: start: 201911, end: 202006
  2. KETOCONAZOLE. [Suspect]
     Active Substance: KETOCONAZOLE
     Dosage: SMALL AMOUNT, 3 TIMES IN 24 HOURS
     Route: 061
     Dates: start: 20200818, end: 20200818
  3. SYNTHROID [Concomitant]
     Active Substance: LEVOTHYROXINE SODIUM
     Indication: HYPOTHYROIDISM
     Dosage: UNK, UNK
     Route: 048
     Dates: start: 201911
  4. KETOCONAZOLE. [Suspect]
     Active Substance: KETOCONAZOLE
     Dosage: SMALL AMOUNT, 3 TIMES IN 24 HOURS
     Route: 061
     Dates: start: 20200816, end: 20200816
  5. KETOCONAZOLE. [Suspect]
     Active Substance: KETOCONAZOLE
     Indication: DRY SKIN
     Dosage: SMALL AMOUNT, QD
     Route: 061
     Dates: start: 202006, end: 20200815

REACTIONS (3)
  - Hair texture abnormal [Recovered/Resolved]
  - Overdose [Recovered/Resolved]
  - Off label use [Recovered/Resolved]

NARRATIVE: CASE EVENT DATE: 201911
